FAERS Safety Report 6741879-8 (Version None)
Quarter: 2010Q2

REPORT INFORMATION
  Report Type: 
  Country: None (occurrence: None)
  Receive Date: 20100526
  Receipt Date: 20100519
  Transmission Date: 20101027
  Serious: Yes (Death, Hospitalization)
  Sender: FDA-Public Use
  Company Number: A0790887A

PATIENT
  Age: 69 Year
  Sex: Female

DRUGS (5)
  1. AVANDIA [Suspect]
     Indication: DIABETES MELLITUS
     Dosage: 2MG TWICE PER DAY
     Route: 048
     Dates: start: 20060314, end: 20080319
  2. LANTUS [Concomitant]
  3. TOPROL-XL [Concomitant]
  4. LOTREL [Concomitant]
  5. AMARYL [Concomitant]

REACTIONS (2)
  - CEREBROVASCULAR ACCIDENT [None]
  - PNEUMONIA ASPIRATION [None]
